FAERS Safety Report 4908814-6 (Version None)
Quarter: 2006Q1

REPORT INFORMATION
  Report Type: 
  Country: None (occurrence: None)
  Receive Date: 20060210
  Receipt Date: 20051130
  Transmission Date: 20060701
  Serious: No
  Sender: FDA-Public Use
  Company Number: US-GLAXOSMITHKLINE-A0584059A

PATIENT
  Age: 70 Year
  Sex: Male

DRUGS (4)
  1. PAXIL CR [Suspect]
     Indication: INSOMNIA
     Dosage: 12.5MG PER DAY
     Route: 048
     Dates: start: 20050701
  2. LIPITOR [Concomitant]
  3. TOPROL [Concomitant]
  4. ALTACE [Concomitant]

REACTIONS (2)
  - HEADACHE [None]
  - NERVOUSNESS [None]
